FAERS Safety Report 22892058 (Version 2)
Quarter: 2024Q3

REPORT INFORMATION
  Report Type: Spontaneous
  Country: IT (occurrence: IT)
  Receive Date: 20230901
  Receipt Date: 20240906
  Transmission Date: 20241017
  Serious: Yes (Hospitalization)
  Sender: NOVARTIS
  Company Number: None

PATIENT
  Age: 38 Year
  Sex: Male

DRUGS (2)
  1. OXCARBAZEPINE [Suspect]
     Active Substance: OXCARBAZEPINE
     Indication: Intentional overdose
     Dosage: UNK
     Route: 048
     Dates: start: 20230813, end: 20230813
  2. GABAPENTIN [Suspect]
     Active Substance: GABAPENTIN
     Indication: Intentional overdose
     Dosage: UNK
     Route: 048
     Dates: start: 20230813, end: 20230813

REACTIONS (4)
  - Somnolence [Not Recovered/Not Resolved]
  - Sopor [Not Recovered/Not Resolved]
  - Suicide attempt [Recovering/Resolving]
  - Intentional overdose [Not Recovered/Not Resolved]

NARRATIVE: CASE EVENT DATE: 20230813
